FAERS Safety Report 18763119 (Version 1)
Quarter: 2021Q1

REPORT INFORMATION
  Report Type: Spontaneous
  Country: US (occurrence: US)
  Receive Date: 20210120
  Receipt Date: 20210120
  Transmission Date: 20210419
  Serious: Yes (Life-Threatening, Hospitalization, Disabling)
  Sender: FDA-Public Use
  Company Number: None

PATIENT
  Age: 30 Year
  Sex: Female
  Weight: 97.52 kg

DRUGS (3)
  1. MIRENA [Suspect]
     Active Substance: LEVONORGESTREL
  2. IBUPROPHEN [Concomitant]
     Active Substance: IBUPROFEN
  3. PROBIOTICS [Concomitant]
     Active Substance: PROBIOTICS NOS

REACTIONS (18)
  - Proctitis [None]
  - Cystitis [None]
  - Dysuria [None]
  - Emotional distress [None]
  - Nausea [None]
  - Vulvitis [None]
  - Colitis [None]
  - Enteritis [None]
  - Medical device pain [None]
  - Endometritis [None]
  - Nephritis [None]
  - Pelvic pain [None]
  - Flatulence [None]
  - Appendicitis [None]
  - Appendicitis perforated [None]
  - Product complaint [None]
  - Pain [None]
  - Dyschezia [None]

NARRATIVE: CASE EVENT DATE: 20201220
